FAERS Safety Report 24422423 (Version 1)
Quarter: 2024Q4

REPORT INFORMATION
  Report Type: Spontaneous
  Country: US (occurrence: US)
  Receive Date: 20241010
  Receipt Date: 20241010
  Transmission Date: 20250114
  Serious: No
  Sender: LABORATOIRES SERB
  Company Number: US-SERB S.A.S.-2162768

PATIENT
  Sex: Female

DRUGS (1)
  1. DIGIFAB [Suspect]
     Active Substance: OVINE DIGOXIN IMMUNE FAB
     Indication: Herbal toxicity

REACTIONS (1)
  - Off label use [Unknown]
